FAERS Safety Report 22637173 (Version 1)
Quarter: 2023Q2

REPORT INFORMATION
  Report Type: Spontaneous
  Country: US (occurrence: None)
  Receive Date: 20230622
  Receipt Date: 20230622
  Transmission Date: 20230722
  Serious: No
  Sender: FDA-Public Use
  Company Number: None

PATIENT
  Weight: 93.44 kg

DRUGS (15)
  1. CAPECITABINE [Suspect]
     Active Substance: CAPECITABINE
     Indication: Breast cancer female
     Dosage: FREQUENCY : TWICE A DAY;?
     Route: 048
  2. TRAZODONE [Concomitant]
     Active Substance: TRAZODONE HYDROCHLORIDE
  3. TRINTELLIX [Concomitant]
     Active Substance: VORTIOXETINE HYDROBROMIDE
  4. LAMOTRIGINE [Concomitant]
     Active Substance: LAMOTRIGINE
  5. CLONAZEPAM [Concomitant]
     Active Substance: CLONAZEPAM
  6. ZOFRAN [Concomitant]
     Active Substance: ONDANSETRON HYDROCHLORIDE
  7. DEXAMETHASONE [Concomitant]
     Active Substance: DEXAMETHASONE
  8. NAPROXEN [Concomitant]
     Active Substance: NAPROXEN
  9. VRAYLAR [Concomitant]
     Active Substance: CARIPRAZINE
  10. BUSPIRONE [Concomitant]
     Active Substance: BUSPIRONE HYDROCHLORIDE
  11. SLYND [Concomitant]
     Active Substance: DROSPIRENONE
  12. MEMANTINE [Concomitant]
     Active Substance: MEMANTINE
  13. VALACYCLOVIR [Concomitant]
     Active Substance: VALACYCLOVIR HYDROCHLORIDE
  14. LEVOTHYROXINE [Concomitant]
     Active Substance: LEVOTHYROXINE
  15. TYLENOL [Concomitant]
     Active Substance: ACETAMINOPHEN

REACTIONS (2)
  - Breast cancer female [None]
  - Malignant neoplasm progression [None]
